FAERS Safety Report 5332387-X (Version None)
Quarter: 2007Q2

REPORT INFORMATION
  Report Type: 
  Country: None (occurrence: None)
  Receive Date: 20070523
  Receipt Date: 20070514
  Transmission Date: 20071010
  Serious: Yes (Life-Threatening, Disabling, Other)
  Sender: FDA-Public Use
  Company Number: D0049790A

PATIENT
  Age: 73 Year
  Sex: Female
  Weight: 84 kg

DRUGS (6)
  1. AVANDIA [Suspect]
     Route: 048
     Dates: start: 20050801, end: 20060512
  2. GLYBURIDE [Concomitant]
     Dosage: 3.5MG THREE TIMES PER DAY
     Route: 048
  3. BRISERIN N [Concomitant]
     Dosage: 5.1MG PER DAY
     Route: 048
  4. ALLOPURINOL [Concomitant]
     Dosage: 300MG PER DAY
     Route: 048
  5. FURORESE [Concomitant]
     Dosage: 60MG TWICE PER DAY
     Route: 048
  6. THYRONAJOD [Concomitant]
     Dosage: 200UG PER DAY
     Route: 048

REACTIONS (21)
  - ARTHRALGIA [None]
  - ASTHENIA [None]
  - BLOOD PRESSURE INCREASED [None]
  - DIZZINESS [None]
  - DYSPNOEA [None]
  - DYSPNOEA AT REST [None]
  - FAECES HARD [None]
  - FATIGUE [None]
  - FLUID RETENTION [None]
  - FORMICATION [None]
  - GAIT DISTURBANCE [None]
  - HEADACHE [None]
  - HYPERGLYCAEMIA [None]
  - JOINT SWELLING [None]
  - MYALGIA [None]
  - OEDEMA [None]
  - OEDEMA PERIPHERAL [None]
  - PARAESTHESIA [None]
  - PULMONARY OEDEMA [None]
  - SWELLING FACE [None]
  - WEIGHT INCREASED [None]
